FAERS Safety Report 10078857 (Version 1)
Quarter: 2014Q2

REPORT INFORMATION
  Report Type: Spontaneous
  Country: US (occurrence: US)
  Receive Date: 20140415
  Receipt Date: 20140415
  Transmission Date: 20141212
  Serious: Yes (Other)
  Sender: FDA-Public Use
  Company Number: US-FRI-1000066247

PATIENT
  Age: 50 Year
  Sex: Female

DRUGS (14)
  1. SAVELLA [Suspect]
     Indication: FIBROMYALGIA
     Dosage: 12.5 MG
     Route: 048
  2. SAVELLA [Suspect]
     Dosage: 25 MG
     Route: 048
  3. SAVELLA [Suspect]
     Dosage: 50 MG
     Route: 048
  4. SAVELLA [Suspect]
     Dosage: 100 MG
     Route: 048
  5. SAVELLA [Suspect]
     Indication: FIBROMYALGIA
     Dosage: 200 MG
     Route: 048
     Dates: end: 201403
  6. SAVELLA [Suspect]
     Indication: FIBROMYALGIA
     Dosage: 100 MG IN AM; 50 MG IN PM
     Route: 048
     Dates: start: 201403, end: 201403
  7. SAVELLA [Suspect]
     Dosage: 100 MG
     Route: 048
     Dates: start: 201403
  8. LISINOPRIL [Concomitant]
     Indication: HYPERTENSION
  9. SIMVASTATIN [Concomitant]
     Indication: BLOOD CHOLESTEROL INCREASED
  10. TOPAMAX [Concomitant]
     Indication: MIGRAINE
  11. PHENERGAN [Concomitant]
     Indication: MIGRAINE
  12. LIDODERM [Concomitant]
  13. MVI [Concomitant]
  14. FIORICET WITH CODEINE [Concomitant]
     Indication: MIGRAINE

REACTIONS (7)
  - Road traffic accident [Recovered/Resolved]
  - Fall [Recovered/Resolved]
  - Back pain [Not Recovered/Not Resolved]
  - Neck pain [Not Recovered/Not Resolved]
  - Musculoskeletal pain [Not Recovered/Not Resolved]
  - Feeling abnormal [Not Recovered/Not Resolved]
  - Stress [Not Recovered/Not Resolved]
